FAERS Safety Report 5795869-2 (Version None)
Quarter: 2008Q3

REPORT INFORMATION
  Report Type: 
  Country: None (occurrence: None)
  Receive Date: 20080701
  Receipt Date: 20080618
  Transmission Date: 20090109
  Serious: Yes (Hospitalization)
  Sender: FDA-Public Use
  Company Number: FR-NOVOPROD-274781

PATIENT
  Age: 88 Year
  Sex: Male

DRUGS (10)
  1. NOVONORM [Suspect]
     Indication: DRUG USE FOR UNKNOWN INDICATION
     Dates: end: 20080116
  2. TIAPRIDAL                          /00435701/ [Suspect]
     Dosage: UNK, QD
     Dates: end: 20080115
  3. PARKINANE [Suspect]
     Dosage: UNK, QD
     Dates: start: 20061101, end: 20080115
  4. LASIX [Concomitant]
     Dates: end: 20080115
  5. TANAKAN                            /01003103/ [Concomitant]
     Dates: end: 20080115
  6. AMLOR [Concomitant]
  7. ACTRAPID [Concomitant]
  8. INSULATARD [Concomitant]
     Dosage: 100 UI AM + 6 UI PN
     Dates: start: 20080118
  9. ROCEPHIN [Concomitant]
     Dates: start: 20080115, end: 20080125
  10. PNEUMOREL [Concomitant]
     Dates: end: 20080115

REACTIONS (5)
  - CONFUSIONAL STATE [None]
  - FALL [None]
  - GAIT DISTURBANCE [None]
  - RESPIRATORY TRACT INFECTION [None]
  - RHABDOMYOLYSIS [None]
